FAERS Safety Report 11735205 (Version 1)
Quarter: 2015Q4

REPORT INFORMATION
  Report Type: Report from Study
  Country: US (occurrence: US)
  Receive Date: 20151113
  Receipt Date: 20151113
  Transmission Date: 20160304
  Serious: No
  Sender: FDA-Public Use
  Company Number: PHEH2015US023191

PATIENT
  Sex: Male
  Weight: 72.56 kg

DRUGS (1)
  1. TOBI PODHALER [Suspect]
     Active Substance: TOBRAMYCIN
     Indication: CYSTIC FIBROSIS
     Dosage: 112 MG (4 CAPSULES), BID (EVERY OTHER MONTH 20 DAYS ON AND 20 DAYS OFF)
     Route: 055
     Dates: start: 201508

REACTIONS (2)
  - Cough [Unknown]
  - Nasopharyngitis [Unknown]
